FAERS Safety Report 13129388 (Version 1)
Quarter: 2017Q1

REPORT INFORMATION
  Report Type: Spontaneous
  Country: RO (occurrence: RO)
  Receive Date: 20170119
  Receipt Date: 20170119
  Transmission Date: 20170428
  Serious: Yes (Life-Threatening)
  Sender: FDA-Public Use
  Company Number: RO-SUN PHARMACEUTICAL INDUSTRIES LTD-2017RR-131535

PATIENT
  Age: 25 Year
  Sex: Male

DRUGS (6)
  1. TRAZODONE [Suspect]
     Active Substance: TRAZODONE HYDROCHLORIDE
     Dosage: 300 MG, DAILY
     Route: 065
     Dates: start: 20160527
  2. TRAZODONE [Suspect]
     Active Substance: TRAZODONE HYDROCHLORIDE
     Indication: MAJOR DEPRESSION
     Dosage: 250 MG, DAILY
     Route: 065
     Dates: start: 20160525
  3. TIAPRIDUM [Suspect]
     Active Substance: TIAPRIDE
     Indication: MAJOR DEPRESSION
     Dosage: 200 MG, DAILY
     Route: 065
     Dates: start: 20160525, end: 20160527
  4. VENLAFAXINE [Suspect]
     Active Substance: VENLAFAXINE HYDROCHLORIDE
     Indication: MAJOR DEPRESSION
     Dosage: 150 MG, DAILY
     Route: 065
  5. CLONAZEPAM. [Suspect]
     Active Substance: CLONAZEPAM
     Indication: MAJOR DEPRESSION
     Dosage: 2 MG, UNK
     Route: 065
     Dates: start: 2012
  6. CLOZAPINE. [Suspect]
     Active Substance: CLOZAPINE
     Indication: MAJOR DEPRESSION
     Dosage: 50 MG/DAY, INCREASED TO 100 MG/DAY ON 29 MAY
     Route: 065
     Dates: start: 20160527, end: 20160602

REACTIONS (1)
  - Drug ineffective [Recovering/Resolving]
